FAERS Safety Report 16261715 (Version 4)
Quarter: 2022Q1

REPORT INFORMATION
  Report Type: Spontaneous
  Country: US (occurrence: None)
  Receive Date: 20190501
  Receipt Date: 20220202
  Transmission Date: 20220424
  Serious: Yes (Hospitalization, Other)
  Sender: FDA-Public Use
  Company Number: 2018SF65578

PATIENT
  Age: 17431 Day
  Sex: Female

DRUGS (59)
  1. NEXIUM [Suspect]
     Active Substance: ESOMEPRAZOLE MAGNESIUM
     Indication: Gastrooesophageal reflux disease
     Route: 048
  2. NEXIUM [Suspect]
     Active Substance: ESOMEPRAZOLE MAGNESIUM
     Indication: Gastrooesophageal reflux disease
     Route: 048
     Dates: start: 20070924
  3. NEXIUM [Suspect]
     Active Substance: ESOMEPRAZOLE MAGNESIUM
     Indication: Gastrooesophageal reflux disease
     Route: 048
     Dates: start: 20070108
  4. NEXIUM [Suspect]
     Active Substance: ESOMEPRAZOLE MAGNESIUM
     Indication: Gastrooesophageal reflux disease
     Route: 048
     Dates: start: 20110308, end: 20150528
  5. ALPRAZOLAM [Concomitant]
     Active Substance: ALPRAZOLAM
  6. PROMETHAZINE [Concomitant]
     Active Substance: PROMETHAZINE HYDROCHLORIDE
  7. LEXAPRO [Concomitant]
     Active Substance: ESCITALOPRAM OXALATE
  8. CLONIDINE [Concomitant]
     Active Substance: CLONIDINE
  9. PROPRANOLOL [Concomitant]
     Active Substance: PROPRANOLOL HYDROCHLORIDE
  10. OXYBUTYNIN [Concomitant]
     Active Substance: OXYBUTYNIN
  11. DEXAMETHASONE [Concomitant]
     Active Substance: DEXAMETHASONE
  12. PREMARIN [Concomitant]
     Active Substance: ESTROGENS, CONJUGATED
  13. EPIPEN [Concomitant]
     Active Substance: EPINEPHRINE
  14. ZONISAMIDE [Concomitant]
     Active Substance: ZONISAMIDE
  15. TIZANIDINE [Concomitant]
     Active Substance: TIZANIDINE
  16. VENLAFAXINE [Concomitant]
     Active Substance: VENLAFAXINE HYDROCHLORIDE
  17. SUMATRIPTAN [Concomitant]
     Active Substance: SUMATRIPTAN
  18. ONDANSETRON [Concomitant]
     Active Substance: ONDANSETRON
  19. NYSTATIN [Concomitant]
     Active Substance: NYSTATIN
  20. ROZEREM [Concomitant]
     Active Substance: RAMELTEON
  21. TRAZODONE [Concomitant]
     Active Substance: TRAZODONE HYDROCHLORIDE
  22. BACLOFEN [Concomitant]
     Active Substance: BACLOFEN
  23. BENZONATATE [Concomitant]
     Active Substance: BENZONATATE
  24. METFORMIN [Concomitant]
     Active Substance: METFORMIN HYDROCHLORIDE
  25. ATORVASTATIN [Concomitant]
     Active Substance: ATORVASTATIN
  26. DULOXETINE [Concomitant]
     Active Substance: DULOXETINE
  27. AZELASTINE [Concomitant]
     Active Substance: AZELASTINE
  28. GABAPENTIN [Concomitant]
     Active Substance: GABAPENTIN
  29. FENOFIBRATE [Concomitant]
     Active Substance: FENOFIBRATE
  30. CARVEDILOL [Concomitant]
     Active Substance: CARVEDILOL
  31. MELOXICAM [Concomitant]
     Active Substance: MELOXICAM
  32. OMEPRAZOLE [Concomitant]
     Active Substance: OMEPRAZOLE
  33. NITROGLYCERIN [Concomitant]
     Active Substance: NITROGLYCERIN
  34. PRAVASTATIN [Concomitant]
     Active Substance: PRAVASTATIN
  35. CARISOPRODOL [Concomitant]
     Active Substance: CARISOPRODOL
  36. MULTIHANCE [Concomitant]
     Active Substance: GADOBENATE DIMEGLUMINE
  37. LIDOCAINE [Concomitant]
     Active Substance: LIDOCAINE
  38. KENALOG [Concomitant]
     Active Substance: TRIAMCINOLONE ACETONIDE
  39. NORVASC [Concomitant]
     Active Substance: AMLODIPINE BESYLATE
  40. VALIUM [Concomitant]
     Active Substance: DIAZEPAM
  41. ASPIRIN [Concomitant]
     Active Substance: ASPIRIN
  42. ABILIFY [Concomitant]
     Active Substance: ARIPIPRAZOLE
  43. LUNESTA [Concomitant]
     Active Substance: ESZOPICLONE
  44. LAMICTAL [Concomitant]
     Active Substance: LAMOTRIGINE
  45. NUCYNTA [Concomitant]
     Active Substance: TAPENTADOL HYDROCHLORIDE
  46. VALTREX [Concomitant]
     Active Substance: VALACYCLOVIR HYDROCHLORIDE
  47. PEPCID [Concomitant]
     Active Substance: FAMOTIDINE
  48. LISINOPRIL [Concomitant]
     Active Substance: LISINOPRIL
  49. ZOFRAN [Concomitant]
     Active Substance: ONDANSETRON HYDROCHLORIDE
  50. PROPOFOL [Concomitant]
     Active Substance: PROPOFOL
  51. ALBUTEROL [Concomitant]
     Active Substance: ALBUTEROL
  52. DILAUDID [Concomitant]
     Active Substance: HYDROMORPHONE HYDROCHLORIDE
  53. BENADRYL [Concomitant]
     Active Substance: DIPHENHYDRAMINE HYDROCHLORIDE
  54. REGLAN [Concomitant]
     Active Substance: METOCLOPRAMIDE HYDROCHLORIDE
  55. CRESTOR [Concomitant]
     Active Substance: ROSUVASTATIN CALCIUM
  56. BYSTOLIC [Concomitant]
     Active Substance: NEBIVOLOL HYDROCHLORIDE
  57. LYRICA [Concomitant]
     Active Substance: PREGABALIN
  58. METHOCARBAMOL [Concomitant]
     Active Substance: METHOCARBAMOL
  59. LORAZEPAM [Concomitant]
     Active Substance: LORAZEPAM

REACTIONS (5)
  - Chronic kidney disease [Unknown]
  - Acute kidney injury [Unknown]
  - Renal failure [Unknown]
  - Renal injury [Unknown]
  - Rebound acid hypersecretion [Unknown]

NARRATIVE: CASE EVENT DATE: 20160909
